FAERS Safety Report 16213487 (Version 2)
Quarter: 2021Q2

REPORT INFORMATION
  Report Type: Spontaneous
  Country: GB (occurrence: GB)
  Receive Date: 20190418
  Receipt Date: 20210503
  Transmission Date: 20210716
  Serious: Yes (Other)
  Sender: FDA-Public Use
  Company Number: GB-MYLANLABS-2019M1036257

PATIENT
  Age: 24 Year
  Sex: Female
  Weight: 67 kg

DRUGS (1)
  1. ISOTRETINOIN. [Suspect]
     Active Substance: ISOTRETINOIN
     Indication: ACNE
     Dosage: 30 MILLIGRAM
     Route: 048
     Dates: start: 20180830, end: 20180927

REACTIONS (2)
  - Pregnancy on oral contraceptive [Unknown]
  - Maternal exposure during pregnancy [Unknown]
